FAERS Safety Report 25795931 (Version 1)
Quarter: 2025Q3

REPORT INFORMATION
  Report Type: Spontaneous
  Country: US (occurrence: None)
  Receive Date: 20250911
  Receipt Date: 20250911
  Transmission Date: 20251020
  Serious: Yes (Other)
  Sender: FDA-CTU
  Company Number: None

PATIENT
  Age: 83 Year
  Sex: Male
  Weight: 98.1 kg

DRUGS (12)
  1. GAMUNEX-C [Suspect]
     Active Substance: HUMAN IMMUNOGLOBULIN G
     Indication: Chronic inflammatory demyelinating polyradiculoneuropathy
     Dosage: FREQUENCY : EVERY THREE WEEKS;?
     Route: 041
     Dates: start: 20250911
  2. PRED FORTE [Concomitant]
     Active Substance: PREDNISOLONE ACETATE
     Dates: start: 20250820
  3. Prednisone 40mg QOD [Concomitant]
     Dates: start: 20230901
  4. TAMSULOSIN [Concomitant]
     Active Substance: TAMSULOSIN
     Dates: start: 20210901
  5. Vitamin E 100mg [Concomitant]
     Dates: start: 20210901
  6. Altace 1.25mg [Concomitant]
     Dates: start: 20210901
  7. COREG [Concomitant]
     Active Substance: CARVEDILOL
     Dates: start: 20210901
  8. Calcium 600 + Vit D [Concomitant]
     Dates: start: 20210901
  9. FERROUS SULFATE [Concomitant]
     Active Substance: FERROUS SULFATE
     Dates: start: 20210901
  10. Lasix 20mg [Concomitant]
     Dates: start: 20210901
  11. OXYBUTYNIN [Concomitant]
     Active Substance: OXYBUTYNIN
     Dates: start: 20210901
  12. Potassium 10MEQ [Concomitant]
     Dates: start: 20210901

REACTIONS (4)
  - Infusion related reaction [None]
  - Visual impairment [None]
  - Corneal implant [None]
  - Therapy cessation [None]

NARRATIVE: CASE EVENT DATE: 20250911
